FAERS Safety Report 11898282 (Version 1)
Quarter: 2016Q1

REPORT INFORMATION
  Report Type: Spontaneous
  Country: US (occurrence: None)
  Receive Date: 20160107
  Receipt Date: 20160107
  Transmission Date: 20160526
  Serious: No
  Sender: FDA-Public Use
  Company Number: None

PATIENT
  Age: 53 Year
  Sex: Male

DRUGS (2)
  1. CAPECITABINE 500MG TAB [Suspect]
     Active Substance: CAPECITABINE
     Indication: COLON CANCER
     Dosage: 4000MG BID D1-14 OFF 7 PO
     Route: 048
  2. ASPRIN [Concomitant]
     Active Substance: ASPIRIN

REACTIONS (2)
  - Dysgeusia [None]
  - Fatigue [None]

NARRATIVE: CASE EVENT DATE: 201512
